FAERS Safety Report 4767377-9 (Version None)
Quarter: 2005Q3

REPORT INFORMATION
  Report Type: 
  Country: None (occurrence: None)
  Receive Date: 20050913
  Receipt Date: 20050713
  Transmission Date: 20060218
  Serious: Yes (Life-Threatening, Hospitalization)
  Sender: FDA-Public Use
  Company Number: FR-ROCHE-411047

PATIENT
  Age: 41 Year
  Sex: Male
  Weight: 92 kg

DRUGS (7)
  1. PEGASYS [Suspect]
     Indication: HEPATITIS C
     Route: 058
     Dates: start: 20041005, end: 20050628
  2. REBETOL [Concomitant]
     Route: 048
     Dates: start: 20041005, end: 20050705
  3. VIRACEPT [Concomitant]
     Dates: start: 20021209
  4. ZIAGEN [Concomitant]
     Dates: start: 20021209
  5. EPIVIR [Concomitant]
     Dates: start: 20021209
  6. ANDROTARDYL [Concomitant]
     Indication: HYPOGONADISM
     Route: 030
     Dates: start: 20050515
  7. DEROXAT [Concomitant]
     Route: 048
     Dates: start: 20050515, end: 20050705

REACTIONS (11)
  - AGRANULOCYTOSIS [None]
  - ALOPECIA [None]
  - ANAEMIA [None]
  - APHTHOUS STOMATITIS [None]
  - DIARRHOEA [None]
  - ERYSIPELAS [None]
  - HAEMOGLOBIN DECREASED [None]
  - NEUTROPHIL COUNT DECREASED [None]
  - PYREXIA [None]
  - RASH [None]
  - WEIGHT DECREASED [None]
